FAERS Safety Report 7238132-5 (Version None)
Quarter: 2011Q1

REPORT INFORMATION
  Report Type: 
  Country: None (occurrence: None)
  Receive Date: 20110119
  Receipt Date: 20110119
  Transmission Date: 20110831
  Serious: No
  Sender: FDA-Public Use
  Company Number: None

PATIENT
  Sex: Female
  Weight: 91.2 kg

DRUGS (3)
  1. TARCEVA [Suspect]
     Dosage: 350 MG
     Dates: end: 20110105
  2. PANITUMUMAB [Suspect]
     Dosage: 400 MG
     Dates: end: 20101230
  3. GEMCITABINE HYDROCHLORIDE [Suspect]
     Dosage: 1750 MG
     Dates: end: 20101230

REACTIONS (7)
  - SYNCOPE [None]
  - HYPOMAGNESAEMIA [None]
  - CONFUSIONAL STATE [None]
  - CONTUSION [None]
  - FALL [None]
  - HALLUCINATION [None]
  - LOSS OF CONSCIOUSNESS [None]
